FAERS Safety Report 24694841 (Version 1)
Quarter: 2024Q4

REPORT INFORMATION
  Report Type: Spontaneous
  Country: US (occurrence: US)
  Receive Date: 20241204
  Receipt Date: 20241204
  Transmission Date: 20250115
  Serious: Yes (Other)
  Sender: HETERO
  Company Number: US-AMAROX PHARMA-HET2024US04483

PATIENT
  Sex: Female

DRUGS (1)
  1. FINGOLIMOD [Suspect]
     Active Substance: FINGOLIMOD
     Indication: Multiple sclerosis
     Dosage: 0.5 MILLIGRAM
     Route: 065

REACTIONS (2)
  - Multiple sclerosis relapse [Unknown]
  - Product measured potency issue [Unknown]
